FAERS Safety Report 4896311-6 (Version None)
Quarter: 2006Q1

REPORT INFORMATION
  Report Type: 
  Country: None (occurrence: None)
  Receive Date: 20060126
  Receipt Date: 20060117
  Transmission Date: 20060701
  Serious: No
  Sender: FDA-Public Use
  Company Number: 06H-167-0304528-00

PATIENT
  Age: 9 Year
  Sex: Female

DRUGS (1)
  1. DOBUTAMINE HCL [Suspect]
     Dosage: 5 MCG/KG, PER MINUTE,

REACTIONS (1)
  - EOSINOPHILIC MYOCARDITIS [None]
